FAERS Safety Report 8823276 (Version 1)
Quarter: 2012Q4

REPORT INFORMATION
  Report Type: 
  Country: IT (occurrence: IT)
  Receive Date: 20121003
  Receipt Date: 20121003
  Transmission Date: 20130627
  Serious: Yes (Other)
  Sender: FDA-Public Use
  Company Number: IT-GLAXOSMITHKLINE-B0834848A

PATIENT
  Age: 57 Year
  Sex: Male

DRUGS (1)
  1. VOTRIENT [Suspect]
     Indication: RENAL CANCER
     Dosage: 400MG Twice per day
     Route: 048
     Dates: start: 20120625, end: 20120703

REACTIONS (3)
  - Hyperpyrexia [Recovered/Resolved]
  - Skin toxicity [Recovered/Resolved]
  - Diarrhoea [Recovered/Resolved]
